FAERS Safety Report 10214475 (Version 1)
Quarter: 2014Q2

REPORT INFORMATION
  Report Type: Spontaneous
  Country: AR (occurrence: AR)
  Receive Date: 20140603
  Receipt Date: 20140603
  Transmission Date: 20141212
  Serious: Yes (Other)
  Sender: FDA-Public Use
  Company Number: AR-PFIZER INC-2014148788

PATIENT
  Age: 60 Year
  Sex: Female

DRUGS (1)
  1. SOMAVERT [Suspect]
     Indication: ACROMEGALY
     Dosage: 10 MG, DAILY
     Dates: start: 20050101

REACTIONS (1)
  - Adenoma benign [Not Recovered/Not Resolved]
